FAERS Safety Report 4962178-0 (Version None)
Quarter: 2006Q2

REPORT INFORMATION
  Report Type: 
  Country: None (occurrence: None)
  Receive Date: 20060403
  Receipt Date: 20060403
  Transmission Date: 20061013
  Serious: No
  Sender: FDA-Public Use
  Company Number: None

PATIENT
  Sex: Male
  Weight: 90.9916 kg

DRUGS (12)
  1. TAMSULOSIN HCL [Suspect]
     Indication: BENIGN PROSTATIC HYPERPLASIA
     Dosage: 0.4MG  Q DAY  PO
     Route: 048
     Dates: start: 20050927, end: 20051007
  2. ASPIRIN [Concomitant]
  3. ATENOLOL [Concomitant]
  4. CLOPIDOGREL BISULFATE [Concomitant]
  5. FINASTERIDE [Concomitant]
  6. FUROSEMIDE [Concomitant]
  7. ISOSORBIDE MONONITRATE [Concomitant]
  8. LISINOPRIL [Concomitant]
  9. LOVASTATIN [Concomitant]
  10. NITROGLYCERIN -ETHEX- [Concomitant]
  11. POTASSIUM CL [Concomitant]
  12. PSYLLIUM SF [Concomitant]

REACTIONS (7)
  - CHEST PAIN [None]
  - DIZZINESS [None]
  - DRUG THERAPY CHANGED [None]
  - FEELING ABNORMAL [None]
  - INSOMNIA [None]
  - RESTLESSNESS [None]
  - VISUAL DISTURBANCE [None]
